FAERS Safety Report 7962131-9 (Version None)
Quarter: 2011Q4

REPORT INFORMATION
  Report Type: 
  Country: None (occurrence: None)
  Receive Date: 20111207
  Receipt Date: 20111129
  Transmission Date: 20120403
  Serious: Yes (Other)
  Sender: FDA-Public Use
  Company Number: US-JNJFOC-20111200069

PATIENT
  Age: 15 Year
  Sex: Female

DRUGS (1)
  1. HALOPERIDOL [Suspect]
     Indication: AGGRESSION
     Route: 065

REACTIONS (2)
  - DYSTONIA [None]
  - DEPRESSED LEVEL OF CONSCIOUSNESS [None]
